FAERS Safety Report 17016455 (Version 1)
Quarter: 2019Q4

REPORT INFORMATION
  Report Type: Spontaneous
  Country: US (occurrence: US)
  Receive Date: 20191109
  Receipt Date: 20191109
  Transmission Date: 20200122
  Serious: No
  Sender: FDA-Public Use
  Company Number: None

PATIENT
  Age: 4 Month
  Sex: Male
  Weight: 16.65 kg

DRUGS (4)
  1. MULTIVITAMIN [Concomitant]
     Active Substance: VITAMINS
  2. POLYETHYLENE GLYCOL 3350, USP POWDER FOR ORAL SOLUTION [Suspect]
     Active Substance: POLYETHYLENE GLYCOL 3350
     Indication: CONSTIPATION
     Dosage: ?          QUANTITY:17 GRAMS;?
     Route: 048
     Dates: start: 20191003, end: 20191109
  3. PROBIOTIC (CULTERELLE KIDS) [Concomitant]
  4. MIRALAX (GENERIC) [Concomitant]

REACTIONS (3)
  - Phobia [None]
  - Paranoia [None]
  - Hallucination, visual [None]

NARRATIVE: CASE EVENT DATE: 20191028
